FAERS Safety Report 7817874-4 (Version None)
Quarter: 2012Q1

REPORT INFORMATION
  Report Type: 
  Country: None (occurrence: None)
  Receive Date: 20111017
  Receipt Date: 20111011
  Transmission Date: 20120608
  Serious: Yes (Other)
  Sender: FDA-Public Use
  Company Number: FR-MERCK-1109FRA00079

PATIENT
  Age: 68 Year
  Sex: Male
  Weight: 75 kg

DRUGS (3)
  1. PIOGLITAZONE HYDROCHLORIDE/METFROMIN HYDROCHLORIDE [Suspect]
     Indication: DIABETES MELLITUS
     Route: 048
     Dates: start: 20090901, end: 20110401
  2. JANUVIA [Suspect]
     Indication: DIABETES MELLITUS
     Route: 048
     Dates: start: 20090301
  3. GLICLAZIDE [Suspect]
     Indication: DIABETES MELLITUS
     Route: 048
     Dates: start: 20000101

REACTIONS (2)
  - HAEMATURIA [None]
  - BLADDER NEOPLASM [None]
